FAERS Safety Report 9075203 (Version 1)
Quarter: 2013Q1

REPORT INFORMATION
  Report Type: Spontaneous
  Country: CN (occurrence: CN)
  Receive Date: 20130129
  Receipt Date: 20130129
  Transmission Date: 20140127
  Serious: Yes (Other)
  Sender: FDA-Public Use
  Company Number: PHHY2012CN122324

PATIENT
  Age: 60 Year
  Sex: Male
  Weight: 68 kg

DRUGS (2)
  1. BENAZEPRIL [Suspect]
     Indication: HYPERTENSION
     Dosage: 10 MG, QD
  2. LESCOL [Suspect]
     Indication: HYPERTENSION
     Dosage: 40 MG, QD
     Route: 048
     Dates: start: 20090704, end: 20090714

REACTIONS (9)
  - Coronary artery disease [Recovering/Resolving]
  - Rhabdomyolysis [Recovering/Resolving]
  - Asthenia [Recovering/Resolving]
  - Myalgia [Recovering/Resolving]
  - Blood pressure [Recovering/Resolving]
  - Blood triglycerides increased [Recovering/Resolving]
  - Chest discomfort [Recovering/Resolving]
  - Alanine aminotransferase increased [Recovering/Resolving]
  - Dizziness [Recovering/Resolving]
